FAERS Safety Report 7092855-X (Version None)
Quarter: 2010Q4

REPORT INFORMATION
  Report Type: 
  Country: None (occurrence: None)
  Receive Date: 20101110
  Receipt Date: 20101102
  Transmission Date: 20110411
  Serious: No
  Sender: FDA-Public Use
  Company Number: US-PFIZER INC-2010139732

PATIENT
  Sex: Male
  Weight: 70.748 kg

DRUGS (8)
  1. VIAGRA [Suspect]
     Indication: ERECTILE DYSFUNCTION
     Dosage: 100 MG, UNK
     Route: 048
     Dates: start: 20070101
  2. AMLODIPINE BESILATE [Concomitant]
     Indication: HYPERTENSION
     Dosage: 10 MG, 1X/DAY
     Dates: start: 20100101
  3. ACETYLSALICYLIC ACID [Concomitant]
     Indication: PROPHYLAXIS
     Dosage: UNK
  4. PRAVASTATIN SODIUM [Concomitant]
     Indication: BLOOD CHOLESTEROL INCREASED
     Dosage: 40 MG, 1X/DAY
     Route: 048
     Dates: start: 20100101
  5. UROXATRAL [Concomitant]
     Indication: PROSTATOMEGALY
     Dosage: UNK
  6. NAPROXEN [Concomitant]
     Indication: ARTHRITIS
     Dosage: 50 MG, UNK
  7. TESTOSTERONE [Concomitant]
     Indication: BLOOD TESTOSTERONE DECREASED
     Dosage: 50 MG, UNK
  8. NEURONTIN [Concomitant]
     Indication: NEURALGIA
     Dosage: 300 MG, 2X/DAY

REACTIONS (2)
  - PENILE CURVATURE [None]
  - PENILE ERYTHEMA [None]
